FAERS Safety Report 4411900-0 (Version None)
Quarter: 2004Q3

REPORT INFORMATION
  Report Type: 
  Country: None (occurrence: None)
  Receive Date: 20040730
  Receipt Date: 20031201
  Transmission Date: 20050211
  Serious: No
  Sender: FDA-Public Use
  Company Number: US-GLAXOSMITHKLINE-A0441480A

PATIENT
  Age: 16 Year
  Sex: Male

DRUGS (2)
  1. ZANTAC [Suspect]
     Indication: ILL-DEFINED DISORDER
     Dosage: 150MG TWICE PER DAY
     Route: 048
  2. UNSPECIFIED INHALER [Concomitant]

REACTIONS (6)
  - AGITATION [None]
  - ANOREXIA [None]
  - CONFUSIONAL STATE [None]
  - DEPRESSED MOOD [None]
  - FEELING ABNORMAL [None]
  - WEIGHT DECREASED [None]
